FAERS Safety Report 6011947-7 (Version None)
Quarter: 2008Q4

REPORT INFORMATION
  Report Type: 
  Country: None (occurrence: None)
  Receive Date: 20081218
  Receipt Date: 20081010
  Transmission Date: 20090506
  Serious: No
  Sender: FDA-Public Use
  Company Number: US-ASTRAZENECA-2008UW22300

PATIENT
  Age: 70 Year
  Sex: Female
  Weight: 83.9 kg

DRUGS (9)
  1. CRESTOR [Suspect]
     Route: 048
  2. COUMADIN [Concomitant]
  3. LASIX [Concomitant]
  4. DIGOXIN [Concomitant]
  5. ALTACE [Concomitant]
  6. ZETIA [Concomitant]
  7. SYNTHROID [Concomitant]
  8. ZYRTEC [Concomitant]
  9. PRILOSEC [Concomitant]

REACTIONS (1)
  - PAIN IN EXTREMITY [None]
